FAERS Safety Report 5004110-X (Version None)
Quarter: 2006Q2

REPORT INFORMATION
  Report Type: 
  Country: None (occurrence: None)
  Receive Date: 20060511
  Receipt Date: 20060426
  Transmission Date: 20061013
  Serious: Yes (Death)
  Sender: FDA-Public Use
  Company Number: 2006058393

PATIENT
  Age: 53 Year
  Sex: Male
  Weight: 101.1521 kg

DRUGS (1)
  1. BEXTRA [Suspect]
     Indication: ARTHRITIS
     Dosage: 20 MG
     Dates: start: 20030828, end: 20050204

REACTIONS (4)
  - ANGINA PECTORIS [None]
  - GASTROINTESTINAL DISORDER [None]
  - HYPERTENSION [None]
  - MYOCARDIAL INFARCTION [None]
